APPROVED DRUG PRODUCT: VORICONAZOLE
Active Ingredient: VORICONAZOLE
Strength: 200MG/VIAL
Dosage Form/Route: POWDER;INTRAVENOUS
Application: A211661 | Product #001 | TE Code: AP
Applicant: SLATE RUN PHARMACEUTICALS LLC
Approved: Nov 30, 2018 | RLD: No | RS: No | Type: RX